FAERS Safety Report 7394403-3 (Version None)
Quarter: 2011Q2

REPORT INFORMATION
  Report Type: 
  Country: None (occurrence: None)
  Receive Date: 20110405
  Receipt Date: 20110322
  Transmission Date: 20111010
  Serious: Yes (Hospitalization, Other)
  Sender: FDA-Public Use
  Company Number: PHHO2011JP04068

PATIENT
  Age: 69 Year
  Sex: Male
  Weight: 66 kg

DRUGS (9)
  1. KETOPROFEN [Concomitant]
  2. VOLTAREN [Concomitant]
  3. FLUITRAN [Suspect]
  4. MOBIC [Concomitant]
  5. DIOVAN [Suspect]
     Dosage: UNK
     Dates: start: 20050101
  6. PREDNISOLONE [Suspect]
  7. PARIET [Suspect]
  8. ISONIAZID [Concomitant]
  9. CALBLOCK [Suspect]

REACTIONS (13)
  - ALANINE AMINOTRANSFERASE INCREASED [None]
  - HAEMANGIOMA OF LIVER [None]
  - HEPATIC ENZYME INCREASED [None]
  - NAUSEA [None]
  - MALAISE [None]
  - POST PROCEDURAL BILE LEAK [None]
  - GALLBLADDER DISORDER [None]
  - JAUNDICE CHOLESTATIC [None]
  - CHOLECYSTITIS CHRONIC [None]
  - BILE DUCT STENOSIS [None]
  - CHOLELITHIASIS [None]
  - HEPATIC FUNCTION ABNORMAL [None]
  - BLOOD BILIRUBIN INCREASED [None]
